FAERS Safety Report 8060845-6 (Version None)
Quarter: 2012Q1

REPORT INFORMATION
  Report Type: 
  Country: None (occurrence: None)
  Receive Date: 20120120
  Receipt Date: 20110208
  Transmission Date: 20120608
  Serious: No
  Sender: FDA-Public Use
  Company Number: US-ALLERGAN-1101894US

PATIENT
  Age: 71 Year
  Sex: Female

DRUGS (2)
  1. TEARS NATURALE [Concomitant]
     Indication: DRY EYE
     Dosage: UNK
  2. RESTASIS [Suspect]
     Indication: DRY EYE
     Dosage: 1 GTT, BID
     Route: 047
     Dates: end: 20110201

REACTIONS (3)
  - EYE IRRITATION [None]
  - MUSCLE TWITCHING [None]
  - OCULAR HYPERAEMIA [None]
